FAERS Safety Report 8071189-0 (Version None)
Quarter: 2012Q1

REPORT INFORMATION
  Report Type: 
  Country: None (occurrence: None)
  Receive Date: 20120125
  Receipt Date: 20120117
  Transmission Date: 20120608
  Serious: Yes (Other)
  Sender: FDA-Public Use
  Company Number: PHHY2011JP113087

PATIENT
  Sex: Female

DRUGS (2)
  1. RIVASTIGMINE [Suspect]
     Indication: DEMENTIA ALZHEIMER'S TYPE
     Dosage: 4.5 MG/24 HOURS,
     Route: 062
     Dates: start: 20110101, end: 20110101
  2. RIVASTIGMINE [Suspect]
     Dosage: 9 MG/24 HOURS,
     Route: 062
     Dates: start: 20110101

REACTIONS (2)
  - EYE SWELLING [None]
  - EYELID OEDEMA [None]
